FAERS Safety Report 12775484 (Version 1)
Quarter: 2016Q3

REPORT INFORMATION
  Report Type: Spontaneous
  Country: DE (occurrence: DE)
  Receive Date: 20160923
  Receipt Date: 20160923
  Transmission Date: 20161109
  Serious: Yes (Hospitalization)
  Sender: FDA-Public Use
  Company Number: DE-JNJFOC-20160800747

PATIENT
  Sex: Female
  Weight: 63 kg

DRUGS (4)
  1. XEPLION [Suspect]
     Active Substance: PALIPERIDONE PALMITATE
     Indication: SCHIZOPHRENIA
     Route: 030
     Dates: start: 20160704
  2. BIPERIDEN [Concomitant]
     Active Substance: BIPERIDEN
     Indication: EXTRAPYRAMIDAL DISORDER
     Dosage: 2-0-0-0
     Route: 065
     Dates: end: 20160720
  3. XEPLION [Suspect]
     Active Substance: PALIPERIDONE PALMITATE
     Indication: SCHIZOPHRENIA
     Route: 030
     Dates: start: 20160610
  4. PROTHIPENDYL [Concomitant]
     Active Substance: PROTHIPENDYL
     Indication: SLEEP DISORDER
     Dosage: AT NIGHT
     Route: 065
     Dates: end: 20160720

REACTIONS (4)
  - Galactorrhoea [Unknown]
  - Breast pain [Unknown]
  - Hospitalisation [Unknown]
  - Hyperprolactinaemia [Unknown]
